FAERS Safety Report 10466460 (Version 1)
Quarter: 2014Q3

REPORT INFORMATION
  Report Type: Spontaneous
  Country: US (occurrence: None)
  Receive Date: 20140919
  Receipt Date: 20140919
  Transmission Date: 20150326
  Serious: Yes (Hospitalization)
  Sender: FDA-Public Use
  Company Number: None

PATIENT
  Age: 5 Year
  Sex: Male
  Weight: 19.05 kg

DRUGS (2)
  1. ALLEGRA [Suspect]
     Active Substance: FEXOFENADINE HYDROCHLORIDE
     Indication: NASOPHARYNGITIS
     Dosage: 5 MIL, ONCE DAILY, TAKEN BY MOUTH
     Route: 048
     Dates: start: 20140914
  2. ALLEGRA [Suspect]
     Active Substance: FEXOFENADINE HYDROCHLORIDE
     Dosage: 5 MIL, ONCE DAILY, TAKEN BY MOUTH
     Route: 048
     Dates: start: 20140914

REACTIONS (6)
  - Feeling abnormal [None]
  - Hypoaesthesia oral [None]
  - Dyspnoea [None]
  - Cough [None]
  - Vomiting [None]
  - Oxygen saturation decreased [None]

NARRATIVE: CASE EVENT DATE: 20140915
